FAERS Safety Report 4655919-3 (Version None)
Quarter: 2005Q2

REPORT INFORMATION
  Report Type: 
  Country: None (occurrence: None)
  Receive Date: 20050505
  Receipt Date: 20050420
  Transmission Date: 20051028
  Serious: Yes (Hospitalization)
  Sender: FDA-Public Use
  Company Number: DEU-2005-0001391

PATIENT
  Age: 70 Year
  Sex: Male

DRUGS (10)
  1. MORPHINE SULFATE INJ [Suspect]
     Indication: BACK PAIN
     Dosage: SEE IMAGE
     Route: 039
  2. HYDROMORPHONE HCL [Suspect]
     Indication: BACK PAIN
     Dosage: 240, ORAL
     Route: 048
  3. CLONIDINE [Concomitant]
  4. METAMIIZOLE METAMIZOLE) [Concomitant]
  5. DICLOFENAC SODIUM [Concomitant]
  6. BROMAZEPAM (BROMAZEPAM) [Concomitant]
  7. DOXEPIN HCL [Concomitant]
  8. CARBAMAZEPINE [Concomitant]
  9. DISTRANEURIN (CLOMETHIAZOLE EDISILATE) [Concomitant]
  10. HALOPERIDOL [Concomitant]

REACTIONS (17)
  - AREFLEXIA [None]
  - ARTHROPATHY [None]
  - DEMYELINATION [None]
  - DEPRESSED LEVEL OF CONSCIOUSNESS [None]
  - DRUG INEFFECTIVE [None]
  - INADEQUATE ANALGESIA [None]
  - INCONTINENCE [None]
  - MOBILITY DECREASED [None]
  - MUSCLE CONTRACTURE [None]
  - MYALGIA [None]
  - MYOCLONUS [None]
  - PARESIS [None]
  - PNEUMONIA [None]
  - POLYNEUROPATHY [None]
  - SPINAL CORD INJURY [None]
  - UPPER MOTOR NEURONE LESION [None]
  - URINARY INCONTINENCE [None]
